FAERS Safety Report 12162370 (Version 1)
Quarter: 2016Q1

REPORT INFORMATION
  Report Type: Report from Study
  Country: IE (occurrence: IE)
  Receive Date: 20160309
  Receipt Date: 20160309
  Transmission Date: 20160526
  Serious: Yes (Hospitalization)
  Sender: FDA-Public Use
  Company Number: PHHO2013IE020071

PATIENT
  Age: 31 Year
  Sex: Female
  Weight: 60.9 kg

DRUGS (8)
  1. ONDANSETRON [Concomitant]
     Active Substance: ONDANSETRON
     Indication: PROPHYLAXIS
     Dosage: 16 MG,
     Route: 048
     Dates: start: 20121028, end: 20121230
  2. TYKERB [Suspect]
     Active Substance: LAPATINIB DITOSYLATE
     Dosage: 1000 MG, QD
     Route: 048
     Dates: start: 20130109
  3. DOCETAXEL. [Suspect]
     Active Substance: DOCETAXEL
     Indication: BREAST NEOPLASM
     Dosage: 100 MG, CYCLIC (75 MG/M2)
     Route: 042
     Dates: start: 20120831
  4. TRASTUZUMAB [Suspect]
     Active Substance: TRASTUZUMAB
     Indication: BREAST NEOPLASM
     Dosage: 483 MG, CYCLIC (6MG/KG)
     Route: 042
     Dates: start: 20120831
  5. NEULASTA [Concomitant]
     Active Substance: PEGFILGRASTIM
     Indication: PROPHYLAXIS
     Dosage: 6 MG,
     Route: 058
     Dates: start: 20121229, end: 20121229
  6. TYKERB [Suspect]
     Active Substance: LAPATINIB DITOSYLATE
     Indication: BREAST NEOPLASM
     Dosage: 100 MG, QD
     Route: 048
     Dates: start: 20120831
  7. CARBOPLATIN. [Suspect]
     Active Substance: CARBOPLATIN
     Indication: BREAST NEOPLASM
     Dosage: 720 MG, CYCLIC
     Route: 042
     Dates: start: 20120831
  8. DEXAMETHASONE. [Concomitant]
     Active Substance: DEXAMETHASONE
     Indication: PROPHYLAXIS
     Dosage: 12 MG,
     Route: 048
     Dates: start: 20121227, end: 20121229

REACTIONS (1)
  - Haematuria [Recovered/Resolved]

NARRATIVE: CASE EVENT DATE: 20130103
